FAERS Safety Report 16095007 (Version 1)
Quarter: 2019Q1

REPORT INFORMATION
  Report Type: Spontaneous
  Country: US (occurrence: US)
  Receive Date: 20190320
  Receipt Date: 20190320
  Transmission Date: 20190418
  Serious: Yes (Hospitalization, Other)
  Sender: FDA-Public Use
  Company Number: US-ASTELLAS-2019US010876

PATIENT
  Age: 62 Year
  Sex: Female

DRUGS (3)
  1. MYCOPHENOLATE MOFETIL. [Suspect]
     Active Substance: MYCOPHENOLATE MOFETIL
     Dosage: UNK UNK, UNKNOWN FREQ.
     Route: 065
  2. TACROLIMUS. [Suspect]
     Active Substance: TACROLIMUS
     Indication: RENAL TRANSPLANT
     Dosage: UNK UNK, UNKNOWN FREQ.
     Route: 065
  3. MYCOPHENOLATE MOFETIL. [Suspect]
     Active Substance: MYCOPHENOLATE MOFETIL
     Indication: RENAL TRANSPLANT
     Dosage: UNK UNK, UNKNOWN FREQ.
     Route: 065

REACTIONS (18)
  - Rhabdomyolysis [Unknown]
  - Fatigue [Unknown]
  - Histology abnormal [Unknown]
  - Escherichia infection [Unknown]
  - Hydronephrosis [Unknown]
  - Leukopenia [Recovering/Resolving]
  - Urosepsis [Unknown]
  - Pain in extremity [Unknown]
  - Acute kidney injury [Unknown]
  - Drug interaction [Unknown]
  - Hypocalcaemia [Unknown]
  - Renal tubular necrosis [Unknown]
  - Hyperphosphataemia [Unknown]
  - Feeding disorder [Unknown]
  - Nephrolithiasis [Unknown]
  - Blood thyroid stimulating hormone increased [Unknown]
  - Asthenia [Unknown]
  - Hypercalcaemia [Recovered/Resolved]
